FAERS Safety Report 7944796-0 (Version None)
Quarter: 2011Q4

REPORT INFORMATION
  Report Type: 
  Country: None (occurrence: None)
  Receive Date: 20111129
  Receipt Date: 20111123
  Transmission Date: 20120403
  Serious: No
  Sender: FDA-Public Use
  Company Number: US-TEVA-308174USA

PATIENT
  Sex: Male
  Weight: 9.534 kg

DRUGS (1)
  1. PLAN B ONE-STEP [Suspect]
     Dosage: UNKNOWN
     Route: 063
     Dates: start: 20111027, end: 20111027

REACTIONS (4)
  - VOMITING [None]
  - DIARRHOEA [None]
  - EXPOSURE DURING BREAST FEEDING [None]
  - HAND-FOOT-AND-MOUTH DISEASE [None]
